FAERS Safety Report 7180051-7 (Version None)
Quarter: 2010Q4

REPORT INFORMATION
  Report Type: 
  Country: None (occurrence: None)
  Receive Date: 20101209
  Receipt Date: 20101130
  Transmission Date: 20110411
  Serious: Yes (Hospitalization)
  Sender: FDA-Public Use
  Company Number: 2010US002596

PATIENT
  Age: 65 Year
  Sex: Male

DRUGS (6)
  1. ALEFACEPT (ALEFACEPT) INJECTION [Suspect]
     Indication: RENAL TRANSPLANT
     Dosage: SEE IMAGE
     Dates: start: 20090808, end: 20090808
  2. ALEFACEPT (ALEFACEPT) INJECTION [Suspect]
     Indication: RENAL TRANSPLANT
     Dosage: SEE IMAGE
     Dates: start: 20090811, end: 20090811
  3. ALEFACEPT (ALEFACEPT) INJECTION [Suspect]
     Indication: RENAL TRANSPLANT
     Dosage: SEE IMAGE
     Dates: start: 20090814, end: 20090814
  4. ALEFACEPT (ALEFACEPT) INJECTION [Suspect]
     Indication: RENAL TRANSPLANT
     Dosage: SEE IMAGE
     Dates: start: 20090831, end: 20091102
  5. ALEFACEPT (ALEFACEPT) INJECTION [Suspect]
     Indication: RENAL TRANSPLANT
     Dosage: SEE IMAGE
     Dates: start: 20091130, end: 20100121
  6. PROGRAF [Concomitant]

REACTIONS (4)
  - DEHYDRATION [None]
  - MENTAL STATUS CHANGES [None]
  - RENAL FAILURE ACUTE [None]
  - VENTRICULAR TACHYCARDIA [None]
